FAERS Safety Report 18962679 (Version 2)
Quarter: 2021Q3

REPORT INFORMATION
  Report Type: Other
  Country: NL (occurrence: PT)
  Receive Date: 20210303
  Receipt Date: 20210907
  Transmission Date: 20211014
  Serious: Yes (Other)
  Sender: FDA-Public Use
  Company Number: NL-KOWA-21EU000753

PATIENT

DRUGS (3)
  1. ZOLNOR [Suspect]
     Active Substance: AMLODIPINE BESYLATE\OLMESARTAN MEDOXOMIL
     Indication: HYPERTENSION
     Dosage: 1 PER DAY, IN THE MORNING (1 POR DIA DE MANHA))
     Route: 048
     Dates: start: 20050101
  2. LIVAZO [Suspect]
     Active Substance: PITAVASTATIN CALCIUM
     Indication: HYPERCHOLESTEROLAEMIA
     Dosage: 8 MG, QW
     Route: 048
     Dates: start: 20050101
  3. ASPIRINA GR [Suspect]
     Active Substance: ASPIRIN
     Indication: ANTIPLATELET THERAPY
     Dosage: 100 MG, QD
     Route: 048
     Dates: start: 20200601

REACTIONS (5)
  - Hot flush [Unknown]
  - Nasopharyngitis [Unknown]
  - Off label use [Unknown]
  - Tremor [Unknown]
  - Pain [Unknown]

NARRATIVE: CASE EVENT DATE: 20210218
